FAERS Safety Report 25045003 (Version 2)
Quarter: 2025Q4

REPORT INFORMATION
  Report Type: Spontaneous
  Country: GB (occurrence: GB)
  Receive Date: 20250306
  Receipt Date: 20251030
  Transmission Date: 20260118
  Serious: Yes (Life-Threatening, Disabling, Other)
  Sender: RANBAXY
  Company Number: GB-SUN PHARMACEUTICAL INDUSTRIES LTD-2025RR-498033

PATIENT
  Age: 36 Year
  Sex: Male
  Weight: 91 kg

DRUGS (1)
  1. VENLAFAXINE [Suspect]
     Active Substance: VENLAFAXINE HYDROCHLORIDE
     Indication: Depression
     Dosage: 150 MG
     Route: 065
     Dates: start: 20200201, end: 20210201

REACTIONS (1)
  - Sexual dysfunction [Not Recovered/Not Resolved]
